FAERS Safety Report 20503843 (Version 1)
Quarter: 2022Q1

REPORT INFORMATION
  Report Type: Spontaneous
  Country: US (occurrence: None)
  Receive Date: 20220221
  Receipt Date: 20220221
  Transmission Date: 20220423
  Serious: Yes (Death)
  Sender: FDA-Public Use
  Company Number: None

PATIENT
  Age: 64 Year
  Sex: Male

DRUGS (15)
  1. LOKELMA [Suspect]
     Active Substance: SODIUM ZIRCONIUM CYCLOSILICATE
     Indication: Hyperkalaemia
     Dosage: FREQUENCY : DAILY;?
     Route: 048
  2. ALBUTEROL [Concomitant]
     Active Substance: ALBUTEROL
  3. BUPRENORPHINE [Concomitant]
     Active Substance: BUPRENORPHINE
  4. CARVEDILOL [Concomitant]
     Active Substance: CARVEDILOL
  5. CLONIDINE [Concomitant]
     Active Substance: CLONIDINE
  6. DEXILANT [Concomitant]
     Active Substance: DEXLANSOPRAZOLE
  7. ELIQUIS [Concomitant]
     Active Substance: APIXABAN
  8. ISOSORBIDE MONO [Concomitant]
  9. LANTUS [Concomitant]
     Active Substance: INSULIN GLARGINE
  10. LISINOPRIL [Concomitant]
     Active Substance: LISINOPRIL
  11. NIFEDIPINE [Concomitant]
     Active Substance: NIFEDIPINE
  12. NITROSTAT [Concomitant]
     Active Substance: NITROGLYCERIN
  13. NOVOLOG [Concomitant]
     Active Substance: INSULIN ASPART
  14. SUCRALFATE [Concomitant]
     Active Substance: SUCRALFATE
  15. RANOLAZINE [Concomitant]
     Active Substance: RANOLAZINE

REACTIONS (1)
  - Death [None]

NARRATIVE: CASE EVENT DATE: 20220210
